FAERS Safety Report 8115530-9 (Version None)
Quarter: 2012Q1

REPORT INFORMATION
  Report Type: 
  Country: None (occurrence: None)
  Receive Date: 20120206
  Receipt Date: 20120131
  Transmission Date: 20120608
  Serious: Yes (Hospitalization)
  Sender: FDA-Public Use
  Company Number: US-AMGEN-USASP2012006574

PATIENT
  Age: 56 Year
  Sex: Male

DRUGS (1)
  1. ENBREL [Suspect]
     Indication: RHEUMATOID ARTHRITIS
     Dosage: 25 MG, QWK
     Dates: start: 19980101

REACTIONS (5)
  - INJECTION SITE HAEMATOMA [None]
  - PAIN [None]
  - DEAFNESS [None]
  - KNEE ARTHROPLASTY [None]
  - MUSCULOSKELETAL PAIN [None]
